FAERS Safety Report 8082882-8 (Version None)
Quarter: 2012Q1

REPORT INFORMATION
  Report Type: 
  Country: None (occurrence: None)
  Receive Date: 20120127
  Receipt Date: 20110125
  Transmission Date: 20120608
  Serious: No
  Sender: FDA-Public Use
  Company Number: US-ABBOTT-11P-163-0700594-00

PATIENT
  Age: 47 Year
  Sex: Female

DRUGS (6)
  1. HUMIRA [Suspect]
     Indication: COLITIS ULCERATIVE
     Dates: end: 20110122
  2. ATENOLOL [Concomitant]
     Indication: HEART RATE IRREGULAR
     Dosage: AT NIGHT
  3. MELOXICAM [Concomitant]
     Indication: PRODUCT USED FOR UNKNOWN INDICATION
     Dosage: AT NIGHT
  4. CLONAZEPAM [Concomitant]
     Indication: PRODUCT USED FOR UNKNOWN INDICATION
  5. BIFERA [Concomitant]
     Indication: BLOOD IRON DECREASED
     Dosage: 1 AT NIGHT
  6. METAXALONE [Concomitant]
     Indication: MUSCLE SPASMS
     Dosage: AT NIGHT

REACTIONS (1)
  - CONSTIPATION [None]
